FAERS Safety Report 18238200 (Version 1)
Quarter: 2020Q3

REPORT INFORMATION
  Report Type: Spontaneous
  Country: US (occurrence: US)
  Receive Date: 20200907
  Receipt Date: 20200907
  Transmission Date: 20201103
  Serious: No
  Sender: FDA-Public Use
  Company Number: US-ASTRAZENECA-2020SF13304

PATIENT
  Age: 47 Year
  Sex: Male

DRUGS (1)
  1. NEXIUM 24HR [Suspect]
     Active Substance: ESOMEPRAZOLE MAGNESIUM
     Dosage: UNKNOWN DOSE.
     Route: 065

REACTIONS (7)
  - Pain [Unknown]
  - Throat irritation [Unknown]
  - Illness [Unknown]
  - Abdominal pain upper [Unknown]
  - Diarrhoea [Unknown]
  - Nausea [Unknown]
  - Headache [Unknown]
